FAERS Safety Report 25613678 (Version 1)
Quarter: 2025Q3

REPORT INFORMATION
  Report Type: Spontaneous
  Country: GB (occurrence: GB)
  Receive Date: 20250728
  Receipt Date: 20250728
  Transmission Date: 20251021
  Serious: Yes (Hospitalization, Other)
  Sender: SANDOZ
  Company Number: None

PATIENT
  Age: 41 Year
  Sex: Female

DRUGS (29)
  1. PANTOPRAZOLE [Suspect]
     Active Substance: PANTOPRAZOLE
     Indication: Product used for unknown indication
     Route: 065
  2. AMOXICILLIN [Concomitant]
     Active Substance: AMOXICILLIN
     Indication: Product used for unknown indication
     Dosage: 500 MG, TID,ONE TO BE TAKEN THREE TIMES A DAY 15 CAPSULE- COURSE COMPLETEDOTHER
     Route: 065
     Dates: start: 20250228
  3. AVEENO [Concomitant]
     Active Substance: DIMETHICONE\HOMOSALATE\OCTINOXATE\OCTISALATE\TITANIUM DIOXIDE
     Indication: Product used for unknown indication
     Dosage: UNK, QID
     Route: 065
     Dates: start: 20250305
  4. BETAMETHASONE VALERATE [Concomitant]
     Active Substance: BETAMETHASONE VALERATE
     Indication: Product used for unknown indication
     Dosage: UNK, TID
     Route: 065
  5. Calcipotriol + betametasona [Concomitant]
     Indication: Product used for unknown indication
     Route: 065
  6. CELECOXIB [Concomitant]
     Active Substance: CELECOXIB
     Indication: Product used for unknown indication
     Dosage: 200 MG,+NBSP;TWICE DAILY - NOT YET ISSUED AS PER EXCHANGEOTHER- UNDER CLATTERBRIDGE: (CYCLE 7 WAS SC
     Route: 065
  7. Coal tar;Hydrocortisone;Salicylic acid [Concomitant]
     Indication: Product used for unknown indication
     Route: 065
  8. CYCLIZINE [Concomitant]
     Active Substance: CYCLIZINE
     Indication: Product used for unknown indication
     Route: 065
  9. DENOSUMAB [Concomitant]
     Active Substance: DENOSUMAB
     Indication: Product used for unknown indication
     Route: 058
     Dates: start: 20250514
  10. DIAZEPAM [Concomitant]
     Active Substance: DIAZEPAM
     Indication: Product used for unknown indication
     Dosage: 2 MG, TID,TAKE ONE TABLET THREE TIMES A DAY WHEN NECESSARY FOR 3 DAYS
     Route: 065
     Dates: start: 20250320
  11. DOCUSATE [Concomitant]
     Active Substance: DOCUSATE
     Indication: Product used for unknown indication
     Dosage: 100 MG,TWO TO BE TAKEN +NBSP;TWICE DAILY MORNING AND NIGHTACUTES
     Route: 065
  12. DOMPERIDONE [Concomitant]
     Active Substance: DOMPERIDONE
     Indication: Product used for unknown indication
     Dosage: 10 MG,ONE TO BE TAKEN UP TO THREE TIMES A DAY. MAXIMUM 3 IN 24 HOURS
     Route: 065
     Dates: start: 20250416
  13. ACETAMINOPHEN\DOMPERIDONE [Concomitant]
     Active Substance: ACETAMINOPHEN\DOMPERIDONE
     Indication: Product used for unknown indication
     Route: 065
  14. Econazole;Hydrocortisone [Concomitant]
     Indication: Product used for unknown indication
     Route: 065
  15. HYDROCORTISONE [Concomitant]
     Active Substance: HYDROCORTISONE
     Indication: Product used for unknown indication
     Dosage: STRENGTH 1%,THINLY TWICE A DAY AS DIRECTED
     Route: 065
  16. Hydrocortisone;Ichthammol [Concomitant]
     Indication: Product used for unknown indication
     Route: 065
  17. OXYCODONE HYDROCHLORIDE [Concomitant]
     Active Substance: OXYCODONE HYDROCHLORIDE
     Indication: Product used for unknown indication
     Dosage: UNK, Q12H,ONE TO BE TAKEN EVERY 12 HOURS,EVERY 12 HOURS 56 TABLET- DOSE INCREASED
     Route: 065
     Dates: start: 20250327
  18. LOPERAMIDE [Concomitant]
     Active Substance: LOPERAMIDE
     Indication: Diarrhoea
     Dosage: 2 MG, QD,UPTO A MAX OF 8 CAPSULES FOUR TIMES A DAY- AS NEEDED
     Route: 065
  19. LORAZEPAM [Concomitant]
     Active Substance: LORAZEPAM
     Indication: Product used for unknown indication
     Dosage: 1 MG, QD,TAKE ONE AT 10 PM AT NIGHTAKE HALF A TABLET UP TO FOUR TIMES A DAY WHEN NEEDED
     Route: 065
     Dates: start: 20250320
  20. MORPHINE [Concomitant]
     Active Substance: MORPHINE
     Indication: Product used for unknown indication
     Route: 065
     Dates: start: 20250313
  21. Oilatum plus [Concomitant]
     Indication: Product used for unknown indication
     Route: 065
  22. OMEPRAZOLE [Concomitant]
     Active Substance: OMEPRAZOLE
     Indication: Oesophagitis
     Dosage: 20 MG,ONE TO BE TAKEN EACH DAY IN THE MORNING- INCREASED TO 40MG +NBSP;ONCE A DAY
     Route: 065
  23. OXYCODONE [Concomitant]
     Active Substance: OXYCODONE
     Indication: Product used for unknown indication
     Dosage: UNK, QID,5 MG / 5 ML ORAL SOLUTION SUGAR FREE 5 ML,5 MG IN 5ML ORAL SOLUTION TAKE 5ML VIA THE ORAL S
     Route: 065
  24. PACLITAXEL [Concomitant]
     Active Substance: PACLITAXEL
     Indication: Product used for unknown indication
     Dosage: UNK 80WEEKLY (ADVANCED)
     Route: 065
  25. PREGABALIN [Concomitant]
     Active Substance: PREGABALIN
     Indication: Product used for unknown indication
     Dosage: 100 MG, BID,ONE TO BE TAKEN TWICE
     Route: 065
  26. PROCHLORPERAZINE [Concomitant]
     Active Substance: PROCHLORPERAZINE
     Indication: Product used for unknown indication
     Dosage: UNK, TID,ONE TO BE TAKEN THREE TIMES A DAY
     Route: 065
     Dates: start: 20250417
  27. SALICYLIC ACID [Concomitant]
     Active Substance: SALICYLIC ACID
     Indication: Product used for unknown indication
     Route: 065
  28. SENNA [Concomitant]
     Active Substance: SENNOSIDES
     Indication: Product used for unknown indication
     Dosage: 7.5 MG, QDTWO TO BE TAKEN AT NIGHT
     Route: 065
  29. ZOPICLONE [Concomitant]
     Active Substance: ZOPICLONE
     Indication: Product used for unknown indication
     Route: 065

REACTIONS (2)
  - Erythema [Unknown]
  - Swelling face [Unknown]
